FAERS Safety Report 5811314-2 (Version None)
Quarter: 2008Q3

REPORT INFORMATION
  Report Type: 
  Country: None (occurrence: None)
  Receive Date: 20080710
  Receipt Date: 20080625
  Transmission Date: 20090109
  Serious: Yes (Other)
  Sender: FDA-Public Use
  Company Number: S08-GER-00104-01

PATIENT
  Age: 32 Year
  Sex: Female

DRUGS (3)
  1. CITALOPRAM HYDROBROMIDE [Suspect]
     Indication: DEPRESSION
     Dosage: 20 MG PO
     Route: 048
     Dates: start: 20070726, end: 20080316
  2. CITALOPRAM HYDROBROMIDE [Suspect]
     Indication: DISEASE RECURRENCE
     Dosage: 20 MG PO
     Route: 048
     Dates: start: 20070726, end: 20080316
  3. PAROXETINE [Concomitant]

REACTIONS (3)
  - MATERNAL DRUGS AFFECTING FOETUS [None]
  - PREGNANCY [None]
  - PREMATURE LABOUR [None]
